FAERS Safety Report 25082542 (Version 2)
Quarter: 2025Q1

REPORT INFORMATION
  Report Type: Spontaneous
  Country: BR (occurrence: BR)
  Receive Date: 20250317
  Receipt Date: 20250325
  Transmission Date: 20250408
  Serious: Yes (Other)
  Sender: NOVO NORDISK
  Company Number: BR-NOVOPROD-1387003

PATIENT
  Age: 33 Year
  Sex: Female

DRUGS (1)
  1. OZEMPIC [Suspect]
     Active Substance: SEMAGLUTIDE
     Indication: Product used for unknown indication

REACTIONS (8)
  - Syncope [Unknown]
  - Malaise [Unknown]
  - Tremor [Unknown]
  - Lip discolouration [Unknown]
  - Hunger [Unknown]
  - Somnolence [Unknown]
  - Wrong technique in product usage process [Recovered/Resolved]
  - Counterfeit product administered [Unknown]
